FAERS Safety Report 4574174-6 (Version None)
Quarter: 2005Q1

REPORT INFORMATION
  Report Type: 
  Country: None (occurrence: None)
  Receive Date: 20050204
  Receipt Date: 20050124
  Transmission Date: 20050727
  Serious: Yes (Other)
  Sender: FDA-Public Use
  Company Number: 2004019184

PATIENT
  Age: 31 Year
  Sex: Female
  Weight: 95.2554 kg

DRUGS (3)
  1. NEURONTIN [Suspect]
     Indication: PAIN
     Dosage: 300 MG (1 IN 1 D), ORAL
     Route: 048
     Dates: start: 20031226
  2. ZOLOFT [Suspect]
     Indication: DEPRESSION
     Dosage: 50 MG (50 MG, 1 IN 1 D), ORAL
     Route: 048
     Dates: start: 20050110
  3. IBUPROFEN [Concomitant]

REACTIONS (13)
  - BRUXISM [None]
  - DEPRESSION [None]
  - DIARRHOEA [None]
  - DRUG INEFFECTIVE [None]
  - FEELING ABNORMAL [None]
  - GASTROINTESTINAL DISORDER [None]
  - HERPES VIRUS INFECTION [None]
  - MIGRAINE [None]
  - PAIN IN JAW [None]
  - SLEEP DISORDER [None]
  - TOOTH FRACTURE [None]
  - VISION BLURRED [None]
  - WEIGHT DECREASED [None]
